FAERS Safety Report 19306236 (Version 3)
Quarter: 2021Q3

REPORT INFORMATION
  Report Type: Spontaneous
  Country: JP (occurrence: JP)
  Receive Date: 20210526
  Receipt Date: 20210908
  Transmission Date: 20211014
  Serious: Yes (Other)
  Sender: FDA-Public Use
  Company Number: NVSJ2021JP007654

PATIENT
  Age: 72 Year
  Sex: Male

DRUGS (13)
  1. BEOVU [Suspect]
     Active Substance: BROLUCIZUMAB-DBLL
     Dosage: 6 MG
     Route: 031
     Dates: start: 20200818, end: 20200818
  2. TAZIN [Concomitant]
     Active Substance: CARBAZOCHROME SODIUM SULFONATE
     Indication: AGE-RELATED MACULAR DEGENERATION
     Dosage: 30 MG, TID
     Route: 048
     Dates: start: 20200610
  3. BENOXIL [Concomitant]
     Active Substance: BENOXINATE HYDROCHLORIDE
     Dosage: 1 DRP, 5QD
     Route: 047
     Dates: start: 20200818, end: 20200818
  4. TARIVID [Concomitant]
     Active Substance: OFLOXACIN
     Dosage: 1 DRP, QID
     Route: 047
     Dates: start: 20200817, end: 20200826
  5. BENOXIL [Concomitant]
     Active Substance: BENOXINATE HYDROCHLORIDE
     Indication: ANAESTHETIC OPHTHALMIC PROCEDURE
     Dosage: 1 DRP, 5QD
     Route: 047
     Dates: start: 20200603, end: 20200603
  6. TARIVID [Concomitant]
     Active Substance: OFLOXACIN
     Indication: INFECTION PROPHYLAXIS
     Dosage: 1 DRP, QID
     Route: 047
     Dates: start: 20200531, end: 20200611
  7. TARIVID [Concomitant]
     Active Substance: OFLOXACIN
     Dosage: 1 DRP, QID
     Route: 047
     Dates: start: 20200704, end: 20200715
  8. BEOVU [Suspect]
     Active Substance: BROLUCIZUMAB-DBLL
     Indication: AGE-RELATED MACULAR DEGENERATION
     Dosage: 6 MG
     Route: 031
     Dates: start: 20200603, end: 20200603
  9. BEOVU [Suspect]
     Active Substance: BROLUCIZUMAB-DBLL
     Dosage: 6 MG
     Route: 031
     Dates: start: 20200707, end: 20200707
  10. OPHMIC [Concomitant]
     Dosage: 1 DRP, TID
     Route: 047
     Dates: start: 20200818, end: 20200818
  11. BENOXIL [Concomitant]
     Active Substance: BENOXINATE HYDROCHLORIDE
     Dosage: 1 DRP, 5QD
     Route: 047
     Dates: start: 20200707, end: 20200707
  12. OPHMIC [Concomitant]
     Indication: MYDRIASIS
     Dosage: 1 DRP, TID
     Route: 047
     Dates: start: 20200603, end: 20200603
  13. OPHMIC [Concomitant]
     Dosage: 1 DRP, TID
     Route: 047
     Dates: start: 20200707, end: 20200707

REACTIONS (3)
  - Visual impairment [Unknown]
  - Vitreous haemorrhage [Not Recovered/Not Resolved]
  - Retinopathy proliferative [Not Recovered/Not Resolved]

NARRATIVE: CASE EVENT DATE: 20201216
